FAERS Safety Report 7246878-8 (Version None)
Quarter: 2011Q1

REPORT INFORMATION
  Report Type: 
  Country: None (occurrence: None)
  Receive Date: 20110127
  Receipt Date: 20110113
  Transmission Date: 20110831
  Serious: Yes (Hospitalization, Other)
  Sender: FDA-Public Use
  Company Number: ES-ELI_LILLY_AND_COMPANY-ES201101002949

PATIENT
  Sex: Female
  Weight: 73 kg

DRUGS (6)
  1. LORAZEPAM [Concomitant]
     Indication: INSOMNIA
     Dosage: 1 D/F, DAILY (1/D)
     Route: 048
  2. NOLOTIL [Concomitant]
     Indication: PAIN
     Dosage: 1 D/F, DAILY (1/D)
     Route: 048
     Dates: start: 20100901
  3. LYRICA [Concomitant]
     Indication: PAIN
     Dosage: 3 D/F, DAILY (1/D)
     Route: 048
  4. DURAGESIC-100 [Concomitant]
     Indication: PAIN
     Dosage: 25 MG, OTHER
     Route: 061
     Dates: start: 20100501
  5. ENANTYUM [Concomitant]
     Indication: PAIN
     Dosage: 1 D/F, EVERY 8 HRS
     Route: 048
  6. FORTEO [Suspect]
     Indication: OSTEOPOROSIS
     Dosage: 20 UG, DAILY (1/D)
     Route: 058
     Dates: start: 20100422

REACTIONS (3)
  - DEVICE DISLOCATION [None]
  - FALL [None]
  - RIB FRACTURE [None]
